FAERS Safety Report 6307542-2 (Version None)
Quarter: 2009Q3

REPORT INFORMATION
  Report Type: 
  Country: None (occurrence: None)
  Receive Date: 20090811
  Receipt Date: 20090730
  Transmission Date: 20100115
  Serious: Yes (Other)
  Sender: FDA-Public Use
  Company Number: 232331K08USA

PATIENT
  Age: 43 Year
  Sex: Female
  Weight: 86 kg

DRUGS (14)
  1. REBIF [Suspect]
     Indication: MULTIPLE SCLEROSIS
     Dosage: 44 MCG, 3 IN 1 WEEKS, SUBCUTANEOUS
     Route: 058
     Dates: start: 20080721, end: 20080101
  2. REBIF [Suspect]
     Indication: MULTIPLE SCLEROSIS
     Dosage: 44 MCG, 3 IN 1 WEEKS, SUBCUTANEOUS
     Route: 058
     Dates: start: 20080801
  3. CYMBALTA [Concomitant]
  4. DETROL LA [Concomitant]
  5. AMANTADINE HCL [Concomitant]
  6. ADDERALL (OBETROL /01345401/) [Concomitant]
  7. BUPROPION HCL [Concomitant]
  8. COPAXONE [Concomitant]
  9. CENTRUM MULTIVITAMINS WITH MINERALS (MULTIVITAMINS WITH MINERALS) [Concomitant]
  10. SELENIUM TR (SELENIUM) [Concomitant]
  11. CALCIUM CARBONATE AND VITAMINS D  U (VITACAL) [Concomitant]
  12. AZO YEAST (ALL OTHER THERAPEUTIC PRODUCTS) [Concomitant]
  13. OMEGA-3 (OMEGA-3 TRIGLYCERIDES) [Concomitant]
  14. MIRALAX [Concomitant]

REACTIONS (7)
  - AORTIC DILATATION [None]
  - DIZZINESS [None]
  - GASTROOESOPHAGEAL REFLUX DISEASE [None]
  - HAEMORRHOIDS [None]
  - HIATUS HERNIA [None]
  - HYPERTENSION [None]
  - PERICARDIAL EFFUSION [None]
